FAERS Safety Report 23154081 (Version 2)
Quarter: 2023Q4

REPORT INFORMATION
  Report Type: Report from Study
  Country: CH (occurrence: None)
  Receive Date: 20231107
  Receipt Date: 20231113
  Transmission Date: 20240110
  Serious: Yes (Hospitalization, Disabling)
  Sender: FDA-Public Use
  Company Number: CH-ROCHE-3451968

PATIENT
  Age: 60 Year
  Sex: Male
  Weight: 77.7 kg

DRUGS (2)
  1. ATEZOLIZUMAB [Suspect]
     Active Substance: ATEZOLIZUMAB
     Indication: Hepatocellular carcinoma
     Dosage: DOSE LAST STUDY DRUG ADMIN PRIOR SAE IS 1200 MG ON 05/OCT/2023 10:30 AM
     Route: 041
  2. TENOFOVIR [Concomitant]
     Active Substance: TENOFOVIR
     Indication: Chronic hepatitis B
     Route: 048

REACTIONS (1)
  - Pulmonary embolism [Unknown]

NARRATIVE: CASE EVENT DATE: 20231026
